FAERS Safety Report 9432217 (Version 1)
Quarter: 2013Q3

REPORT INFORMATION
  Report Type: Report from Study
  Country: CA (occurrence: CA)
  Receive Date: 20130731
  Receipt Date: 20130731
  Transmission Date: 20140515
  Serious: Yes (Death, Hospitalization)
  Sender: FDA-Public Use
  Company Number: CA-ROCHE-557562

PATIENT
  Age: 80 Year
  Sex: Female
  Weight: 72.8 kg

DRUGS (14)
  1. CAPECITABINE [Suspect]
     Indication: COLORECTAL CANCER
     Dosage: THERAPY PERMANENTLY DISCONTINUED.
     Route: 048
     Dates: start: 20080222, end: 20080402
  2. BEVACIZUMAB [Suspect]
     Indication: COLORECTAL CANCER
     Dosage: DOSE, FREQUENCY AND THERAPY START DATES NOT REPORTED.
     Route: 065
  3. ASPIRIN [Concomitant]
     Route: 065
     Dates: start: 200702, end: 20080328
  4. PANTOLOC [Concomitant]
     Route: 065
     Dates: start: 2003, end: 20080402
  5. REMERON [Concomitant]
     Route: 065
     Dates: start: 2004, end: 20080328
  6. ADVAIR [Concomitant]
     Dosage: TDD REPORTED AS: 50/250MG
     Route: 065
     Dates: start: 200702, end: 20080402
  7. FLOVENT [Concomitant]
     Route: 065
     Dates: start: 200702, end: 20080328
  8. VITAMIN B12 [Concomitant]
     Route: 065
     Dates: start: 2006, end: 20080328
  9. ADALAT [Concomitant]
     Route: 065
     Dates: start: 2006, end: 20080402
  10. DOCUSATE SODIUM [Concomitant]
     Route: 065
     Dates: start: 2003, end: 20080309
  11. LACTULOSE [Concomitant]
     Route: 065
     Dates: start: 2003, end: 20080328
  12. SPIRIVA [Concomitant]
     Route: 065
     Dates: start: 200702, end: 20080402
  13. SERTRALINE [Concomitant]
     Route: 065
     Dates: start: 2004, end: 20080402
  14. SUCRALFATE [Concomitant]
     Dosage: DRUG REPORTED AS: SULCRAFATE
     Route: 065
     Dates: start: 20080307, end: 20080328

REACTIONS (2)
  - Pneumonia [Fatal]
  - Abdominal pain [Recovering/Resolving]
